FAERS Safety Report 5866936-X (Version None)
Quarter: 2008Q3

REPORT INFORMATION
  Report Type: 
  Country: None (occurrence: None)
  Receive Date: 20080827
  Receipt Date: 20080812
  Transmission Date: 20090109
  Serious: Yes (Hospitalization)
  Sender: FDA-Public Use
  Company Number: DSJ-2008-04078

PATIENT
  Age: 57 Year
  Sex: Male
  Weight: 76 kg

DRUGS (6)
  1. OLMESARTAN MEDOXOMIL [Suspect]
     Indication: ESSENTIAL HYPERTENSION
     Dosage: 20 MG (20 MG, 1 IN 1 D), PER ORAL
     Route: 048
     Dates: start: 20060217, end: 20070605
  2. CALBLOCK (AZELNIDIPINE) (TABLET) (AZELNIDIPINE) [Suspect]
     Dosage: 16 MG (16 MG, 1 IN 1 D), PER ORAL
     Route: 048
     Dates: start: 20060301, end: 20070605
  3. ALLOPURINOL [Suspect]
     Dosage: 200/DAY (2 IN 1 D) ,PER ORAL
     Route: 048
     Dates: end: 20070605
  4. TRICOR [Suspect]
     Dosage: 135 MG (135 MG, 1 IN 1 D) ,PER ORAL
     Route: 048
     Dates: start: 20060513, end: 20070605
  5. BEZATOL (BEZAFIBRATE) (BEZAFIBRATE) [Concomitant]
  6. LIPITOR [Concomitant]

REACTIONS (1)
  - ATRIAL FIBRILLATION [None]
